FAERS Safety Report 6318870-9 (Version None)
Quarter: 2009Q3

REPORT INFORMATION
  Report Type: 
  Country: None (occurrence: None)
  Receive Date: 20090821
  Receipt Date: 20090811
  Transmission Date: 20100115
  Serious: Yes (Death)
  Sender: FDA-Public Use
  Company Number: JP-ELI_LILLY_AND_COMPANY-JP200908002032

PATIENT
  Age: 79 Year
  Sex: Male

DRUGS (6)
  1. ZYPREXA [Suspect]
     Indication: ANXIETY
     Dosage: 2.5 MG, 2/D
     Route: 048
     Dates: start: 20090525, end: 20090607
  2. AMOBAN [Concomitant]
     Indication: INSOMNIA
     Dosage: 7.5 MG, DAILY (1/D)
     Route: 048
     Dates: start: 20090522, end: 20090611
  3. RIVOTRIL [Concomitant]
     Indication: ANXIETY
     Dosage: 1.5 MG, DAILY (1/D)
     Route: 048
     Dates: start: 20090525, end: 20090607
  4. RISPERDAL [Concomitant]
     Dosage: 0.5 D/F, DAILY (1/D)
     Route: 048
     Dates: start: 20090608, end: 20090621
  5. CONSTAN [Concomitant]
     Dosage: UNK, UNK
     Route: 048
     Dates: start: 20090608, end: 20090621
  6. OIF [Concomitant]
     Indication: RENAL CANCER
     Dosage: 5000000 U, DAILY (1/D), FROM MONDAY TO FRIDAY
     Route: 058
     Dates: start: 20090420, end: 20090515

REACTIONS (1)
  - COMPLETED SUICIDE [None]
